FAERS Safety Report 13493701 (Version 11)
Quarter: 2017Q4

REPORT INFORMATION
  Report Type: Spontaneous
  Country: US (occurrence: US)
  Receive Date: 20170427
  Receipt Date: 20171117
  Transmission Date: 20180320
  Serious: Yes (Hospitalization)
  Sender: FDA-Public Use
  Company Number: US-ACTELION-A-US2017-153051

PATIENT
  Age: 71 Year
  Sex: Male
  Weight: 75.74 kg

DRUGS (7)
  1. ELIQUIS [Concomitant]
     Active Substance: APIXABAN
  2. LASIX [Concomitant]
     Active Substance: FUROSEMIDE
     Dosage: 80 MG, QD
  3. ADCIRCA [Concomitant]
     Active Substance: TADALAFIL
  4. LASIX [Concomitant]
     Active Substance: FUROSEMIDE
     Dosage: 40 MG, QD
  5. TYVASO [Concomitant]
     Active Substance: TREPROSTINIL
  6. OPSUMIT [Suspect]
     Active Substance: MACITENTAN
     Indication: PULMONARY ARTERIAL HYPERTENSION
     Dosage: 10 MG, QD
     Route: 048
  7. OXYGEN. [Concomitant]
     Active Substance: OXYGEN
     Dosage: 3 - 4UNK, NC

REACTIONS (18)
  - Multiple organ dysfunction syndrome [Unknown]
  - Cardiac failure [Unknown]
  - Condition aggravated [Unknown]
  - Vomiting [Unknown]
  - Fatigue [Unknown]
  - Gout [Unknown]
  - Weight decreased [Unknown]
  - Dyspnoea [Recovering/Resolving]
  - Pulmonary arterial hypertension [Unknown]
  - Feeling abnormal [Unknown]
  - Fall [Unknown]
  - Foot fracture [Unknown]
  - Lower limb fracture [Unknown]
  - Respiratory failure [Unknown]
  - Ascites [Unknown]
  - Infection [Unknown]
  - Renal failure [Unknown]
  - Sepsis [Unknown]

NARRATIVE: CASE EVENT DATE: 201704
